FAERS Safety Report 7730622-1 (Version None)
Quarter: 2011Q3

REPORT INFORMATION
  Report Type: 
  Country: None (occurrence: None)
  Receive Date: 20110906
  Receipt Date: 20110905
  Transmission Date: 20111222
  Serious: Yes (Other)
  Sender: FDA-Public Use
  Company Number: US-JNJFOC-20110811093

PATIENT
  Sex: Female

DRUGS (1)
  1. SIMPONI [Suspect]
     Indication: MATERNAL EXPOSURE DURING PREGNANCY
     Route: 015
     Dates: start: 20090101, end: 20090101

REACTIONS (1)
  - PREMATURE BABY [None]
